FAERS Safety Report 24704514 (Version 1)
Quarter: 2024Q4

REPORT INFORMATION
  Report Type: Spontaneous
  Country: GB (occurrence: GB)
  Receive Date: 20241206
  Receipt Date: 20241206
  Transmission Date: 20250114
  Serious: Yes (Life-Threatening)
  Sender: TEVA
  Company Number: GB-MHRA-EMIS-4113-1bce372c-1203-49f7-9004-cdbe4b9c41d1

PATIENT
  Age: 66 Year
  Sex: Male
  Weight: 64 kg

DRUGS (6)
  1. ROSUVASTATIN [Suspect]
     Active Substance: ROSUVASTATIN
     Indication: Product used for unknown indication
     Dosage: DAILY DOSE: 1 DOSAGE FORM
     Route: 065
     Dates: start: 20241024, end: 20241120
  2. PREDNISOLONE [Concomitant]
     Active Substance: PREDNISOLONE
     Indication: Adverse drug reaction
     Dosage: DAILY DOSE: 6 DOSAGE FORM; DURATION: 29 DAYS
     Dates: start: 20240828, end: 20240926
  3. PREDNISOLONE [Concomitant]
     Active Substance: PREDNISOLONE
     Indication: Adverse drug reaction
     Dosage: DAILY DOSE: 6 DOSAGE FORM; DURATION: 29 DAYS
     Dates: start: 20241016, end: 20241114
  4. MEBEVERINE [Concomitant]
     Active Substance: MEBEVERINE
     Indication: Abdominal pain
     Dosage: TIME INTERVAL: 0.33333333 DAYS: DAILY DOSE: 1 DOSAGE FORM;  TWENTY MINUTES BEFORE FOOD
     Dates: start: 20240903
  5. ATORVASTATIN [Concomitant]
     Active Substance: ATORVASTATIN
     Indication: Product used for unknown indication
     Dosage: AT BEDTIME; DAILY DOSE: 1 DOSAGE FORM
     Dates: start: 20241008, end: 20241024
  6. AMOXICILLIN [Concomitant]
     Active Substance: AMOXICILLIN
     Indication: Lung consolidation
     Dosage: TIME INTERVAL: 0.33333333 DAYS: DAILY DOSE: 3 DOSAGE FORM
     Dates: start: 20240828, end: 20240926

REACTIONS (1)
  - Dyspnoea [Recovered/Resolved]

NARRATIVE: CASE EVENT DATE: 20241015
